FAERS Safety Report 7513483-5 (Version None)
Quarter: 2011Q2

REPORT INFORMATION
  Report Type: 
  Country: None (occurrence: None)
  Receive Date: 20110531
  Receipt Date: 20110519
  Transmission Date: 20111010
  Serious: Yes (Hospitalization, Other)
  Sender: FDA-Public Use
  Company Number: US-ASTRAZENECA-2011SE11830

PATIENT
  Age: 49 Year
  Sex: Male

DRUGS (5)
  1. SEROQUEL [Suspect]
     Indication: BIPOLAR DISORDER
     Route: 048
     Dates: start: 20060101
  2. PRAVACHOL [Concomitant]
     Indication: HYPERCHOLESTEROLAEMIA
  3. NEXIUM [Suspect]
     Route: 048
     Dates: start: 20100801
  4. FLOMAX [Concomitant]
     Indication: PROSTATOMEGALY
  5. PAMALOR [Concomitant]

REACTIONS (6)
  - MEMORY IMPAIRMENT [None]
  - CEREBROVASCULAR ACCIDENT [None]
  - MALAISE [None]
  - GUILLAIN-BARRE SYNDROME [None]
  - DISABILITY [None]
  - MENTAL IMPAIRMENT [None]
